FAERS Safety Report 25774771 (Version 4)
Quarter: 2025Q4

REPORT INFORMATION
  Report Type: Spontaneous
  Country: EU (occurrence: EU)
  Receive Date: 20250908
  Receipt Date: 20251211
  Transmission Date: 20260118
  Serious: Yes (Other)
  Sender: MYLAN
  Company Number: EU-BIOVITRUM-2025-FR-010405

PATIENT
  Age: 16 Year
  Sex: Male
  Weight: 55 kg

DRUGS (19)
  1. SPIRONOLACTONE [Suspect]
     Active Substance: SPIRONOLACTONE
     Indication: Oedematous kidney
     Dosage: 100 MILLIGRAM, QD (ONCE DAILY)
     Dates: start: 202505, end: 20250818
  2. SPIRONOLACTONE [Suspect]
     Active Substance: SPIRONOLACTONE
     Indication: Renal injury
  3. SPIRONOLACTONE [Suspect]
     Active Substance: SPIRONOLACTONE
     Indication: C3 glomerulopathy
  4. PEGCETACOPLAN [Suspect]
     Active Substance: PEGCETACOPLAN
     Indication: C3 glomerulopathy
     Dosage: 1080 MILLIGRAM, Q2W ( (1BOTTLE / VIAL), 2X 1WEEK (TWICE WEEKLY))
     Dates: start: 20250731
  5. PREDNISONE [Concomitant]
     Active Substance: PREDNISONE
     Indication: Nephropathy
     Dosage: 5 MILLIGRAM, QD (ONCE DAILY)
     Dates: start: 202502
  6. PREDNISONE [Concomitant]
     Active Substance: PREDNISONE
     Indication: C3 glomerulopathy
  7. MYCOPHENOLATE MOFETIL [Concomitant]
     Active Substance: MYCOPHENOLATE MOFETIL
     Indication: Nephropathy
     Dosage: 500 MILLIGRAM, BID (TWICE DAILY)
     Dates: start: 202502
  8. MYCOPHENOLATE MOFETIL [Concomitant]
     Active Substance: MYCOPHENOLATE MOFETIL
     Dosage: 500 MILLIGRAM, BID (MORNING AND EVENING) (1000 MG, QD)
     Dates: start: 20250129
  9. ENALAPRIL [Concomitant]
     Active Substance: ENALAPRIL
     Indication: Nephropathy
     Dosage: 10 MILLIGRAM, QD (ONCE DAILY)
     Dates: start: 20241218
  10. SODIUM BICARBONATE [Concomitant]
     Active Substance: SODIUM BICARBONATE
     Indication: Nephropathy
     Dosage: 500 MILLIGRAM, TID (3 TIMES DAILY)
     Dates: start: 202507
  11. SODIUM BICARBONATE [Concomitant]
     Active Substance: SODIUM BICARBONATE
     Dosage: 500 MILLIGRAM, TID (MORNING, NOON, AND EVENING) (1500 MG, QD)
     Dates: start: 202507
  12. SOLIRIS [Concomitant]
     Active Substance: ECULIZUMAB
     Indication: C3 glomerulopathy
     Dosage: 1200 MILLIGRAM, Q2W (WOULD BE COMPLETED ON 28-AUG-2025, EVERY TWO WEEKS)
     Dates: start: 20250326, end: 20250731
  13. CHOLECALCIFEROL [Concomitant]
     Active Substance: CHOLECALCIFEROL
     Indication: C3 glomerulopathy
     Dosage: 50000 INTERNATIONAL UNIT, QW (1 AMPOULE EVERY MONDAYS)
  14. ALFACALCIDOL [Concomitant]
     Active Substance: ALFACALCIDOL
     Indication: C3 glomerulopathy
     Dosage: 1 MICROGRAM, QD (DAILY)
  15. ALFACALCIDOL [Concomitant]
     Active Substance: ALFACALCIDOL
     Dosage: 1 DOSAGE FORM
  16. Calcidose [Concomitant]
     Indication: C3 glomerulopathy
     Dosage: 500 MILLIGRAM, QD (1 SACHET ONCE DAILY)
  17. Oracilin [Concomitant]
     Indication: Antibiotic prophylaxis
     Dosage: 1000000 INTERNATIONAL UNIT, BID (TWICE DAILY)
     Dates: start: 20250731, end: 20250814
  18. Oracilin [Concomitant]
     Dosage: 1000000 INTERNATIONAL UNIT, BID (MORNING AND EVENING) 2000000 IU
     Dates: start: 20250731
  19. FUROSEMIDE [Concomitant]
     Active Substance: FUROSEMIDE
     Indication: C3 glomerulopathy
     Dosage: 80 MILLIGRAM

REACTIONS (12)
  - Tension headache [Recovered/Resolved]
  - Dizziness [Recovered/Resolved]
  - Injection site swelling [Unknown]
  - Injection site erythema [Recovered/Resolved]
  - Extravasation [Recovered/Resolved]
  - Injection site pain [Recovered/Resolved]
  - Alopecia [Not Recovered/Not Resolved]
  - Condition aggravated [Not Recovered/Not Resolved]
  - Gynaecomastia [Unknown]
  - Erythema [Recovering/Resolving]
  - Headache [Recovered/Resolved]
  - Off label use [Not Recovered/Not Resolved]

NARRATIVE: CASE EVENT DATE: 20250731
